FAERS Safety Report 19313494 (Version 1)
Quarter: 2021Q2

REPORT INFORMATION
  Report Type: Spontaneous
  Country: US (occurrence: US)
  Receive Date: 20210526
  Receipt Date: 20210526
  Transmission Date: 20210717
  Serious: Yes (Hospitalization)
  Sender: FDA-Public Use
  Company Number: None

PATIENT
  Age: 62 Year
  Sex: Female

DRUGS (3)
  1. SINGULAIR [Concomitant]
     Active Substance: MONTELUKAST SODIUM
  2. COSENTYX [Suspect]
     Active Substance: SECUKINUMAB
     Indication: PSORIATIC ARTHROPATHY
     Dosage: ?          OTHER DOSE:2 PEN;?
     Route: 058
     Dates: start: 20201022
  3. ZYRTEC ALLGY [Concomitant]

REACTIONS (4)
  - Psoriasis [None]
  - Skin disorder [None]
  - Therapy change [None]
  - Peripheral swelling [None]

NARRATIVE: CASE EVENT DATE: 20210525
